FAERS Safety Report 25250135 (Version 1)
Quarter: 2025Q2

REPORT INFORMATION
  Report Type: Report from Study
  Country: IN (occurrence: IN)
  Receive Date: 20250429
  Receipt Date: 20250429
  Transmission Date: 20250716
  Serious: Yes (Other)
  Sender: ACCORD
  Company Number: IN-MLMSERVICE-20250410-PI476442-00306-2

PATIENT
  Age: 24 Year
  Sex: Male

DRUGS (3)
  1. TACROLIMUS [Suspect]
     Active Substance: TACROLIMUS
     Indication: Immunosuppressant drug therapy
     Dosage: 5 MG/DAY IN TWO DIVIDED DOSES, HIKE IN BASELINE IMMUNOSUPPRESSION
     Route: 048
     Dates: start: 202308, end: 2023
  2. MYCOPHENOLATE MOFETIL [Concomitant]
     Active Substance: MYCOPHENOLATE MOFETIL
     Indication: Immunosuppressant drug therapy
     Dosage: HIKE IN BASELINE IMMUNOSUPPRESSION
     Dates: start: 202308
  3. PREDNISONE [Concomitant]
     Active Substance: PREDNISONE
     Indication: Immunosuppressant drug therapy
     Dosage: HIKE IN BASELINE IMMUNOSUPPRESSION
     Route: 048
     Dates: start: 202308

REACTIONS (2)
  - Peroneal nerve palsy [Recovered/Resolved]
  - Toxicity to various agents [Recovered/Resolved]

NARRATIVE: CASE EVENT DATE: 20230801
